FAERS Safety Report 4746123-9 (Version None)
Quarter: 2005Q3

REPORT INFORMATION
  Report Type: 
  Country: None (occurrence: None)
  Receive Date: 20050816
  Receipt Date: 20050708
  Transmission Date: 20060218
  Serious: Yes (Other)
  Sender: FDA-Public Use
  Company Number: US-BRISTOL-MYERS SQUIBB COMPANY-13079397

PATIENT

DRUGS (6)
  1. CYCLOPHOSPHAMIDE [Suspect]
     Indication: NEOPLASM MALIGNANT
  2. DOXORUBICIN HCL [Suspect]
     Indication: NEOPLASM MALIGNANT
  3. CISPLATIN [Suspect]
     Indication: NEOPLASM MALIGNANT
  4. VINCRISTINE [Suspect]
     Indication: NEOPLASM MALIGNANT
  5. DACARBAZINE [Suspect]
     Indication: NEOPLASM MALIGNANT
  6. DACTINOMYCIN [Suspect]
     Indication: NEOPLASM MALIGNANT

REACTIONS (1)
  - SCLERODERMA [None]
